FAERS Safety Report 4663035-X (Version None)
Quarter: 2005Q2

REPORT INFORMATION
  Report Type: 
  Country: None (occurrence: None)
  Receive Date: 20050513
  Receipt Date: 20050429
  Transmission Date: 20051028
  Serious: Yes (Death)
  Sender: FDA-Public Use
  Company Number: ENT 2005-0052

PATIENT
  Age: 54 Year
  Sex: Male

DRUGS (3)
  1. COMTAN [Suspect]
     Indication: PARKINSON'S DISEASE
  2. SINEMET [Concomitant]
  3. CABASER [Concomitant]

REACTIONS (9)
  - AGGRESSION [None]
  - COMMUNICATION DISORDER [None]
  - CONDITION AGGRAVATED [None]
  - CORONARY ARTERY DISEASE [None]
  - GRUNTING [None]
  - MYOCARDIAL INFARCTION [None]
  - OBESITY [None]
  - PARKINSON'S DISEASE [None]
  - PSYCHOTIC DISORDER [None]
